FAERS Safety Report 8766636 (Version 1)
Quarter: 2012Q4

REPORT INFORMATION
  Report Type: Report from Study
  Country: DE (occurrence: DE)
  Receive Date: 20120904
  Receipt Date: 20120904
  Transmission Date: 20130627
  Serious: Yes (Hospitalization)
  Sender: FDA-Public Use
  Company Number: DE-SANOFI-AVENTIS-2012SA063246

PATIENT
  Age: 57 Year
  Sex: Male
  Weight: 64 kg

DRUGS (8)
  1. OXALIPLATIN [Suspect]
     Indication: MALIGNANT NEOPLASM OF COLON
     Route: 065
     Dates: start: 20120521
  2. OXALIPLATIN [Suspect]
     Indication: MALIGNANT NEOPLASM OF COLON
     Route: 065
     Dates: start: 20120731
  3. BEVACIZUMAB [Suspect]
     Indication: MALIGNANT NEOPLASM OF COLON
     Route: 065
     Dates: start: 20120521
  4. BEVACIZUMAB [Suspect]
     Indication: MALIGNANT NEOPLASM OF COLON
     Route: 065
     Dates: start: 20120731
  5. CALCIUM FOLINATE [Suspect]
     Indication: MALIGNANT NEOPLASM OF COLON
     Route: 065
     Dates: start: 20120521
  6. CALCIUM FOLINATE [Suspect]
     Indication: MALIGNANT NEOPLASM OF COLON
     Route: 065
     Dates: start: 20120731
  7. FLUOROURACIL [Suspect]
     Indication: MALIGNANT NEOPLASM OF COLON
     Route: 065
     Dates: start: 20120521
  8. FLUOROURACIL [Suspect]
     Indication: MALIGNANT NEOPLASM OF COLON
     Dosage: dose: 3200 mg/me2
     Route: 065
     Dates: start: 20120731

REACTIONS (1)
  - Mental disorder due to a general medical condition [Recovered/Resolved]
